FAERS Safety Report 18524804 (Version 3)
Quarter: 2020Q4

REPORT INFORMATION
  Report Type: Report from Study
  Country: US (occurrence: US)
  Receive Date: 20201119
  Receipt Date: 20201209
  Transmission Date: 20210114
  Serious: Yes (Hospitalization)
  Sender: FDA-Public Use
  Company Number: US-PFIZER INC-2020453988

PATIENT
  Age: 28 Year
  Sex: Female
  Weight: 81.1 kg

DRUGS (14)
  1. INOTUZUMAB OZOGAMICIN [Suspect]
     Active Substance: INOTUZUMAB OZOGAMICIN
     Dosage: SECOND CYCLE
     Route: 042
     Dates: start: 20201204
  2. VINCRISTINE SULFATE. [Suspect]
     Active Substance: VINCRISTINE SULFATE
     Indication: ACUTE LYMPHOCYTIC LEUKAEMIA RECURRENT
     Dosage: 0.4 MG/M2/DAY, CIV, DAYS 1-4 Q28 DAYS
     Route: 041
     Dates: start: 20201103, end: 20201106
  3. ACYCLOVIR [ACICLOVIR] [Concomitant]
     Active Substance: ACYCLOVIR
     Dosage: 800 MG, Q12 HOURS
     Route: 048
  4. FAMOTIDINE. [Concomitant]
     Active Substance: FAMOTIDINE
     Dosage: 20 MG, BID
     Route: 048
  5. FLUCONAZOLE. [Concomitant]
     Active Substance: FLUCONAZOLE
     Dosage: 200 MG, DAILY
     Route: 048
  6. SENNA [SENNOSIDE A+B] [Concomitant]
     Active Substance: SENNOSIDES A AND B
     Dosage: 17.2 MG, QHS (EVERY NIGHT AT BEDTIME)
     Route: 048
  7. LEVOFLOXACIN. [Concomitant]
     Active Substance: LEVOFLOXACIN
     Dosage: 750 MG, QAM (EVERY MORNING)
     Route: 048
  8. SULFAMETHOXAZOLE/TRIMETHOPRIM [Concomitant]
     Active Substance: SULFAMETHOXAZOLE\TRIMETHOPRIM
     Dosage: 1 TAB BID ON QMTU (DS 800 MG-160 MG )
     Route: 048
  9. DOXORUBICIN HCL [Suspect]
     Active Substance: DOXORUBICIN HYDROCHLORIDE
     Indication: ACUTE LYMPHOCYTIC LEUKAEMIA RECURRENT
     Dosage: 10 MG/M2/DAY, CIV, DAYS 1-4 Q28 DAYS
     Route: 041
     Dates: start: 20201103, end: 20201106
  10. CYCLOPHOSPHAMIDE. [Suspect]
     Active Substance: CYCLOPHOSPHAMIDE
     Indication: ACUTE LYMPHOCYTIC LEUKAEMIA RECURRENT
     Dosage: 750 MG/M2, DAY 5 Q28 DAYS
     Route: 042
     Dates: start: 20201107, end: 20201107
  11. FILGRASTIM [Concomitant]
     Active Substance: FILGRASTIM
     Dosage: 480 MCG/1.6 ML SDV INJECTABLE DAILY
     Route: 058
  12. GRANIX [Concomitant]
     Active Substance: TBO-FILGRASTIM
     Dosage: 480 MCG/0.8 ML SUBCUTANEOUS SOLUTION, DAILY FOR 14 DAY(S) INJECT DOSE DAILY
     Route: 058
  13. INOTUZUMAB OZOGAMICIN [Suspect]
     Active Substance: INOTUZUMAB OZOGAMICIN
     Indication: ACUTE LYMPHOCYTIC LEUKAEMIA RECURRENT
     Dosage: 0.6 MG/M2 DAY 8, 0.3 MG/M2 DAY 15, DAY 8 AND 15 Q28 DAYS
     Route: 042
     Dates: start: 20201110
  14. ETOPOSIDE. [Suspect]
     Active Substance: ETOPOSIDE
     Indication: ACUTE LYMPHOCYTIC LEUKAEMIA RECURRENT
     Dosage: 50 MG/M2/DAY, CIV, DAYS 1-4 Q28 DAYS
     Route: 041
     Dates: start: 20201103, end: 20201106

REACTIONS (1)
  - Febrile neutropenia [Recovered/Resolved]

NARRATIVE: CASE EVENT DATE: 20201115
